FAERS Safety Report 16343273 (Version 1)
Quarter: 2019Q3

REPORT INFORMATION
  Report Type: Spontaneous
  Country: US (occurrence: US)
  Receive Date: 20190521
  Receipt Date: 20190521
  Transmission Date: 20191004
  Serious: Yes (Hospitalization)
  Sender: FDA-Public Use
  Company Number: None

PATIENT
  Age: 71 Year
  Sex: Male

DRUGS (14)
  1. NIFEDIPINE CAPSULE 10MG [Concomitant]
     Dates: start: 20190415
  2. ATORVASTATIN TABLET 40MG [Concomitant]
     Dates: start: 20190123
  3. MEKINIST [Suspect]
     Active Substance: TRAMETINIB DIMETHYL SULFOXIDE
     Indication: THYROID CANCER
     Route: 048
     Dates: start: 20190427
  4. LOSARTAN POTASSIUM TABLET 50MG [Concomitant]
     Dates: start: 20190412
  5. KETOCONAZOLE CREAM 2% [Concomitant]
     Active Substance: KETOCONAZOLE
     Dates: start: 20190519
  6. VITAMIN D CAPSULE 50000UNIT [Concomitant]
     Dates: start: 20190412
  7. CARVEDILOL TABLET 25MG [Concomitant]
     Dates: start: 20190121
  8. WARFARIN TABLET 5MG [Concomitant]
     Dates: start: 20190412
  9. TAFINLAR [Suspect]
     Active Substance: DABRAFENIB MESYLATE
     Indication: THYROID CANCER
     Route: 048
     Dates: start: 20190427
  10. SYNTHROID 50MCG TABLET [Concomitant]
     Dates: start: 20190412
  11. LEVOFLOXACIN SOL 25MG/ML [Concomitant]
     Dates: start: 20190514
  12. SYNTHROID 200MCG TABLET [Concomitant]
     Dates: start: 20190412
  13. SPIRONOLACTONE TABLET 25MG [Concomitant]
     Dates: start: 20190412
  14. HYDROCODONE/APAP 10-325MG TABLET [Concomitant]
     Dates: start: 20190424

REACTIONS (3)
  - Peripheral swelling [None]
  - Therapy cessation [None]
  - Lung infection [None]

NARRATIVE: CASE EVENT DATE: 20190512
